FAERS Safety Report 6574588-9 (Version None)
Quarter: 2010Q1

REPORT INFORMATION
  Report Type: 
  Country: None (occurrence: None)
  Receive Date: 20100209
  Receipt Date: 20100126
  Transmission Date: 20100710
  Serious: Yes (Life-Threatening)
  Sender: FDA-Public Use
  Company Number: NP-TYCO HEALTHCARE/MALLINCKRODT-T201000560

PATIENT
  Age: 27 Year
  Sex: Female
  Weight: 56 kg

DRUGS (8)
  1. FENTANYL [Suspect]
     Indication: ANAESTHESIA
     Dosage: 100 MCG
  2. HALOTHANE [Suspect]
     Indication: ANAESTHESIA
     Dosage: 1.5 %
  3. HALOTHANE [Suspect]
     Dosage: 2 %
  4. HALOTHANE [Suspect]
     Dosage: 1 %
  5. PROPOFOL [Suspect]
     Indication: ANAESTHESIA
     Dosage: 170 MG, SINGLE
  6. VECURONIUM BROMIDE [Suspect]
     Indication: ANAESTHESIA
     Dosage: 5.5 MG, SINGLE
  7. GABAPENTIN [Concomitant]
     Indication: PREMEDICATION
     Dosage: 600 MG, SINGLE
     Route: 048
  8. CEFTRIAXONE [Concomitant]
     Dosage: 1 G, SINGLE
     Route: 042

REACTIONS (2)
  - BLOOD PRESSURE INCREASED [None]
  - CARDIAC ARREST [None]
